FAERS Safety Report 25996862 (Version 2)
Quarter: 2025Q4

REPORT INFORMATION
  Report Type: Spontaneous
  Country: EU (occurrence: EU)
  Receive Date: 20251104
  Receipt Date: 20251104
  Transmission Date: 20260117
  Serious: Yes (Life-Threatening, Other)
  Sender: SANDOZ
  Company Number: EU-SANDOZ-SDZ2025DE081157

PATIENT
  Age: 73 Year
  Sex: Female

DRUGS (2)
  1. CYCLOPHOSPHAMIDE [Suspect]
     Active Substance: CYCLOPHOSPHAMIDE
     Indication: Lymphodepletion
     Route: 048
  2. DEXAMETHASONE [Suspect]
     Active Substance: DEXAMETHASONE
     Indication: Chronic inflammatory demyelinating polyradiculoneuropathy
     Dosage: 18 AND 23 DAYS (CSF CELL COUNT 1/?L) AFTER SYMPTOM ONSET
     Route: 037

REACTIONS (4)
  - COVID-19 pneumonia [Recovering/Resolving]
  - Urosepsis [Recovering/Resolving]
  - Infection in an immunocompromised host [Recovering/Resolving]
  - Off label use [Unknown]
